FAERS Safety Report 21824366 (Version 1)
Quarter: 2023Q1

REPORT INFORMATION
  Report Type: Spontaneous
  Country: US (occurrence: US)
  Receive Date: 20230105
  Receipt Date: 20230105
  Transmission Date: 20230418
  Serious: Yes (Other)
  Sender: FDA-Public Use
  Company Number: US-PFIZER INC-PV202300001296

PATIENT
  Sex: Female

DRUGS (1)
  1. PREMPRO [Suspect]
     Active Substance: ESTROGENS, CONJUGATED\MEDROXYPROGESTERONE ACETATE
     Dosage: UNK

REACTIONS (6)
  - Oophorectomy bilateral [Unknown]
  - Mastectomy [Unknown]
  - COVID-19 [Unknown]
  - Fibromyalgia [Unknown]
  - Chronic fatigue syndrome [Unknown]
  - Pyrexia [Unknown]
